FAERS Safety Report 24141611 (Version 3)
Quarter: 2024Q3

REPORT INFORMATION
  Report Type: Report from Study
  Country: CA (occurrence: CA)
  Receive Date: 20240726
  Receipt Date: 20240917
  Transmission Date: 20241017
  Serious: Yes (Other)
  Sender: CSL BEHRING
  Company Number: CA-BEH-2024174820

PATIENT
  Age: 71 Year
  Sex: Female
  Weight: 107 kg

DRUGS (8)
  1. HIZENTRA [Suspect]
     Active Substance: HUMAN IMMUNOGLOBULIN G
     Indication: Secondary immunodeficiency
     Dosage: 20 G, QOW
     Route: 065
     Dates: start: 20240309
  2. HIZENTRA [Suspect]
     Active Substance: HUMAN IMMUNOGLOBULIN G
     Dosage: 10 G, QW
     Route: 065
  3. HIZENTRA [Suspect]
     Active Substance: HUMAN IMMUNOGLOBULIN G
     Dosage: 10 G, EVERY 2 WEEK
     Route: 065
  4. SYNTHROID [Concomitant]
     Active Substance: LEVOTHYROXINE SODIUM
  5. LISINOPRIL [Concomitant]
     Active Substance: LISINOPRIL
     Indication: Prophylaxis
  6. LISINOPRIL [Concomitant]
     Active Substance: LISINOPRIL
     Indication: Prophylaxis
  7. VENETOCLAX [Concomitant]
     Active Substance: VENETOCLAX
     Dosage: UNK, QD
     Route: 048
  8. VALACYCLOVIR [Concomitant]
     Active Substance: VALACYCLOVIR HYDROCHLORIDE
     Indication: Prophylaxis

REACTIONS (16)
  - Injection site necrosis [Unknown]
  - Pain [Unknown]
  - Lipodystrophy acquired [Unknown]
  - Chronic lymphocytic leukaemia recurrent [Unknown]
  - Chronic sinusitis [Unknown]
  - Injection site mass [Recovering/Resolving]
  - Injection site pain [Recovering/Resolving]
  - Injection site mass [Recovered/Resolved]
  - Injection site erythema [Recovered/Resolved]
  - Injection site warmth [Recovered/Resolved]
  - Underdose [Unknown]
  - Lack of injection site rotation [Unknown]
  - Blood creatinine increased [Unknown]
  - Creatinine urine increased [Unknown]
  - Nodule [Unknown]
  - Tenderness [Unknown]

NARRATIVE: CASE EVENT DATE: 20240101
